FAERS Safety Report 22147865 (Version 1)
Quarter: 2023Q1

REPORT INFORMATION
  Report Type: Spontaneous
  Country: BR (occurrence: BR)
  Receive Date: 20230328
  Receipt Date: 20230328
  Transmission Date: 20230418
  Serious: Yes (Other)
  Sender: FDA-Public Use
  Company Number: BR-ELI_LILLY_AND_COMPANY-BR202303003274

PATIENT
  Sex: Female

DRUGS (4)
  1. OLUMIANT [Suspect]
     Active Substance: BARICITINIB
     Indication: Rheumatoid arthritis
     Dosage: 4 MG, DAILY
     Route: 048
     Dates: start: 202204
  2. HYDROCHLOROTHIAZIDE [Concomitant]
     Active Substance: HYDROCHLOROTHIAZIDE
     Indication: Blood pressure measurement
  3. CHOLECALCIFEROL [Concomitant]
     Active Substance: CHOLECALCIFEROL
     Indication: Supplementation therapy
  4. CALCIUM [Concomitant]
     Active Substance: CALCIUM
     Indication: Supplementation therapy

REACTIONS (2)
  - Joint injury [Unknown]
  - Rheumatoid arthritis [Unknown]
